FAERS Safety Report 12684698 (Version 2)
Quarter: 2016Q3

REPORT INFORMATION
  Report Type: Spontaneous
  Country: GB (occurrence: GB)
  Receive Date: 20160825
  Receipt Date: 20160826
  Transmission Date: 20161109
  Serious: Yes (Other)
  Sender: FDA-Public Use
  Company Number: GB-PFIZER INC-2016396821

PATIENT

DRUGS (2)
  1. METRONIDAZOLE. [Suspect]
     Active Substance: METRONIDAZOLE
     Dosage: UNK
  2. AZATHIOPRINE. [Interacting]
     Active Substance: AZATHIOPRINE
     Dosage: UNK

REACTIONS (2)
  - Neutropenia [Unknown]
  - Drug interaction [Unknown]
